FAERS Safety Report 4424670-7 (Version None)
Quarter: 2004Q3

REPORT INFORMATION
  Report Type: 
  Country: None (occurrence: None)
  Receive Date: 20040806
  Receipt Date: 20040423
  Transmission Date: 20050211
  Serious: Yes (Other)
  Sender: FDA-Public Use
  Company Number: 2001-BL-00080

PATIENT
  Age: 30 Year
  Sex: Male

DRUGS (4)
  1. VIRAMUNE [Suspect]
     Indication: HIV INFECTION
     Dosage: SEE IMAGE
     Route: 048
     Dates: start: 20010409, end: 20010430
  2. VIRAMUNE [Suspect]
     Indication: HIV INFECTION
     Dosage: SEE IMAGE
     Route: 048
     Dates: start: 20010430, end: 20020511
  3. STAVUDINE (STAVUDINE) [Concomitant]
  4. LAMIVUDINE (LAMIVUDINE) [Suspect]

REACTIONS (10)
  - ANOREXIA [None]
  - ASTHENIA [None]
  - CHOLURIA [None]
  - HEPATOTOXICITY [None]
  - JAUNDICE [None]
  - MALAISE [None]
  - NAUSEA [None]
  - OEDEMA [None]
  - PYREXIA [None]
  - RASH PRURITIC [None]
